FAERS Safety Report 9254429 (Version 1)
Quarter: 2013Q2

REPORT INFORMATION
  Report Type: Spontaneous
  Country: FR (occurrence: FR)
  Receive Date: 20130425
  Receipt Date: 20130425
  Transmission Date: 20140414
  Serious: Yes (Other)
  Sender: FDA-Public Use
  Company Number: FR-BRISTOL-MYERS SQUIBB COMPANY-18802819

PATIENT
  Age: 60 Year
  Sex: Male

DRUGS (1)
  1. ONGLYZA TABS [Suspect]
     Indication: DIABETES MELLITUS

REACTIONS (1)
  - Pancreatic carcinoma [Unknown]
